FAERS Safety Report 4899811-8 (Version None)
Quarter: 2006Q1

REPORT INFORMATION
  Report Type: 
  Country: None (occurrence: None)
  Receive Date: 20060118
  Receipt Date: 20050912
  Transmission Date: 20060701
  Serious: No
  Sender: FDA-Public Use
  Company Number: 2005001782

PATIENT
  Sex: Female

DRUGS (8)
  1. TARCEVA [Suspect]
     Indication: NON-SMALL CELL LUNG CANCER
     Dosage: 150 MG (QD), ORAL
     Route: 048
     Dates: start: 20050707
  2. DIABETA [Concomitant]
  3. VITAMIN B6 [Concomitant]
  4. SIMVASTATIN [Concomitant]
  5. ORETIC (HYDROCHLOROTHIAZIDE) [Concomitant]
  6. VITAMIN B12 [Concomitant]
  7. ACIPHEX [Concomitant]
  8. COMPAZINE [Concomitant]

REACTIONS (1)
  - HIRSUTISM [None]
